FAERS Safety Report 4877432-0 (Version None)
Quarter: 2006Q1

REPORT INFORMATION
  Report Type: 
  Country: None (occurrence: None)
  Receive Date: 20060111
  Receipt Date: 20060105
  Transmission Date: 20060701
  Serious: Yes (Life-Threatening)
  Sender: FDA-Public Use
  Company Number: 2006CG00042

PATIENT
  Age: 47 Year
  Sex: Female
  Weight: 56 kg

DRUGS (4)
  1. NEXIUM [Suspect]
     Indication: TRACHEITIS
     Route: 048
     Dates: start: 20051019, end: 20051023
  2. AUGMENTIN '125' [Suspect]
     Indication: BACTERIAL INFECTION
     Route: 048
     Dates: start: 20051021, end: 20051021
  3. AUGMENTIN '125' [Suspect]
     Route: 042
     Dates: start: 20051022, end: 20051023
  4. URSOLVAN [Concomitant]
     Indication: BILE DUCT OBSTRUCTION
     Route: 048
     Dates: start: 20021114

REACTIONS (4)
  - HEPATITIS CHOLESTATIC [None]
  - PANCREATITIS ACUTE [None]
  - PERITONEAL EFFUSION [None]
  - RESPIRATORY DISORDER [None]
